FAERS Safety Report 14910687 (Version 1)
Quarter: 2018Q2

REPORT INFORMATION
  Report Type: Not Available
  Country: US (occurrence: US)
  Receive Date: 20180517
  Receipt Date: 20180517
  Transmission Date: 20180711
  Serious: No
  Sender: FDA-Public Use
  Company Number: US-NEUROCRINE BIOSCIENCES INC.-2018NBI01338

PATIENT
  Sex: Female

DRUGS (5)
  1. LAMICTAL [Concomitant]
     Active Substance: LAMOTRIGINE
  2. INVEGA [Concomitant]
     Active Substance: PALIPERIDONE
  3. INGREZZA [Suspect]
     Active Substance: VALBENAZINE
     Route: 048
  4. ZIPRAZIDONE [Concomitant]
     Active Substance: ZIPRASIDONE
  5. INGREZZA [Suspect]
     Active Substance: VALBENAZINE
     Indication: TARDIVE DYSKINESIA
     Route: 048
     Dates: start: 20171006, end: 20180420

REACTIONS (1)
  - Tremor [Unknown]
